FAERS Safety Report 14026469 (Version 3)
Quarter: 2017Q4

REPORT INFORMATION
  Report Type: Report from Study
  Country: US (occurrence: US)
  Receive Date: 20170929
  Receipt Date: 20171020
  Transmission Date: 20180321
  Serious: No
  Sender: FDA-Public Use
  Company Number: PHEH2017US031393

PATIENT
  Sex: Male

DRUGS (1)
  1. OMNITROPE [Suspect]
     Active Substance: SOMATROPIN
     Indication: HYPOPITUITARISM
     Dosage: 1.8 MG, QD
     Route: 058
     Dates: start: 201504

REACTIONS (3)
  - Product storage error [Unknown]
  - Injection site rash [Not Recovered/Not Resolved]
  - Liquid product physical issue [Not Recovered/Not Resolved]
